FAERS Safety Report 6577203-3 (Version None)
Quarter: 2010Q1

REPORT INFORMATION
  Report Type: 
  Country: None (occurrence: None)
  Receive Date: 20100210
  Receipt Date: 20100201
  Transmission Date: 20100710
  Serious: Yes (Other)
  Sender: FDA-Public Use
  Company Number: PHHY2010BR05711

PATIENT
  Age: 48 Year
  Sex: Female
  Weight: 94 kg

DRUGS (2)
  1. FORASEQ [Suspect]
     Indication: ASTHMA
     Dosage: 1 DF, TID
  2. PREDNISONE [Concomitant]
     Dosage: 2 TABLETS DAILY

REACTIONS (7)
  - ASTHMA [None]
  - DIZZINESS [None]
  - HEADACHE [None]
  - INCORRECT ROUTE OF DRUG ADMINISTRATION [None]
  - MEMORY IMPAIRMENT [None]
  - MUSCLE SPASMS [None]
  - SOMNOLENCE [None]
